FAERS Safety Report 23814776 (Version 2)
Quarter: 2024Q2

REPORT INFORMATION
  Report Type: Report from Study
  Country: US (occurrence: US)
  Receive Date: 20240503
  Receipt Date: 20240605
  Transmission Date: 20240715
  Serious: No
  Sender: FDA-Public Use
  Company Number: US-MYLANLABS-2024M1038313

PATIENT
  Sex: Female

DRUGS (3)
  1. TYRVAYA [Suspect]
     Active Substance: VARENICLINE TARTRATE
     Indication: Dry eye
     Dosage: UNK
     Route: 065
     Dates: end: 20240424
  2. TYRVAYA [Suspect]
     Active Substance: VARENICLINE TARTRATE
     Dosage: 0.03 MILLIGRAM, BID (ONE SPRAY IN EACH NOSTRIL)
     Route: 045
     Dates: start: 202405, end: 202405
  3. MONTELUKAST [Concomitant]
     Active Substance: MONTELUKAST SODIUM
     Indication: Deafness
     Dosage: UNK
     Route: 065

REACTIONS (4)
  - Ocular discomfort [Unknown]
  - Fatigue [Unknown]
  - Vision blurred [Unknown]
  - Nasal discomfort [Unknown]
